FAERS Safety Report 8381911-1 (Version None)
Quarter: 2012Q2

REPORT INFORMATION
  Report Type: 
  Country: None (occurrence: None)
  Receive Date: 20120522
  Receipt Date: 20120522
  Transmission Date: 20120825
  Serious: Yes (Hospitalization)
  Sender: FDA-Public Use
  Company Number: None

PATIENT
  Age: 36 Year
  Sex: Female
  Weight: 140.1615 kg

DRUGS (5)
  1. ZITHROMAX [Suspect]
     Indication: LOWER RESPIRATORY TRACT INFECTION
     Dosage: 5 DAY 2 THEN 1 FOR 5 DAY PO
     Route: 048
     Dates: start: 20120330, end: 20120404
  2. ZITHROMAX [Suspect]
     Indication: ASTHMA
     Dosage: 5 DAY 2 THEN 1 FOR 5 DAY PO
     Route: 048
     Dates: start: 20120330, end: 20120404
  3. ZITHROMAX [Suspect]
     Indication: CONDITION AGGRAVATED
     Dosage: 5 DAY 2 THEN 1 FOR 5 DAY PO
     Route: 048
     Dates: start: 20120330, end: 20120404
  4. WARFARIN SODIUM [Concomitant]
  5. METFORMIN HCL [Concomitant]

REACTIONS (2)
  - HEART RATE IRREGULAR [None]
  - DYSPNOEA [None]
